FAERS Safety Report 25377714 (Version 1)
Quarter: 2025Q2

REPORT INFORMATION
  Report Type: Report from Study
  Country: GB (occurrence: GB)
  Receive Date: 20250530
  Receipt Date: 20250530
  Transmission Date: 20250717
  Serious: Yes (Other)
  Sender: SANDOZ
  Company Number: GB-002147023-NVSC2022GB075749

PATIENT
  Sex: Male

DRUGS (3)
  1. OMNITROPE [Suspect]
     Active Substance: SOMATROPIN
     Dosage: 1.1 MG, QD
     Route: 058
     Dates: start: 20230321
  2. OMNITROPE [Suspect]
     Active Substance: SOMATROPIN
     Indication: Hypopituitarism
     Dosage: 1 MG, QD (AS DIRECTED)
     Route: 065
  3. OMNITROPE [Suspect]
     Active Substance: SOMATROPIN
     Dosage: 1.50 MG, QD
     Route: 058

REACTIONS (11)
  - Surgery [Unknown]
  - Injection site discharge [Unknown]
  - Head discomfort [Unknown]
  - Motion sickness [Unknown]
  - Visual impairment [Unknown]
  - Illness [Unknown]
  - Injection site haemorrhage [Unknown]
  - Malaise [Unknown]
  - Product supply issue [Unknown]
  - Medication error [Unknown]
  - Product dose omission issue [Unknown]
